FAERS Safety Report 9045311 (Version 3)
Quarter: 2013Q1

REPORT INFORMATION
  Report Type: Spontaneous
  Country: US (occurrence: US)
  Receive Date: 20130131
  Receipt Date: 20130307
  Transmission Date: 20140127
  Serious: No
  Sender: FDA-Public Use
  Company Number: US-PFIZER INC-2013032063

PATIENT
  Age: 52 Year
  Sex: Male
  Weight: 87.98 kg

DRUGS (12)
  1. RAPAMUNE [Suspect]
     Dosage: 1 MG, 4X/DAY
     Dates: end: 201212
  2. SUTENT [Suspect]
     Indication: PANCREATIC NEUROENDOCRINE TUMOUR
     Dosage: 37.5 MG (25 MG + 12.5 MG), UNK
     Dates: start: 20130119
  3. ZOLOFT [Concomitant]
     Dosage: UNK
  4. ATIVAN [Concomitant]
     Dosage: UNK
  5. PHENERGAN [Concomitant]
     Dosage: UNK
  6. ACETYLSALICYLIC ACID [Concomitant]
     Dosage: 81 MG, UNK
  7. PREVACID [Concomitant]
     Dosage: UNK
  8. JANUVIA [Concomitant]
     Dosage: UNK
  9. BENICAR HCT [Concomitant]
     Dosage: UNK
  10. MORPHINE [Concomitant]
     Dosage: UNK
  11. MAGIC MOUTHWASH [Concomitant]
     Dosage: UNK
  12. M.V.I. [Concomitant]
     Dosage: UNK

REACTIONS (17)
  - Musculoskeletal pain [Unknown]
  - Hepatomegaly [Unknown]
  - Infection [Unknown]
  - Thrombosis [Unknown]
  - Dehydration [Unknown]
  - Fatigue [Unknown]
  - Stomatitis [Unknown]
  - Decreased appetite [Unknown]
  - Dysgeusia [Unknown]
  - Anosmia [Unknown]
  - Nausea [Unknown]
  - Weight decreased [Unknown]
  - Diarrhoea [Not Recovered/Not Resolved]
  - Yellow skin [Not Recovered/Not Resolved]
  - Initial insomnia [Not Recovered/Not Resolved]
  - Pruritus [Unknown]
  - Weight increased [Unknown]
